FAERS Safety Report 5279405-5 (Version None)
Quarter: 2007Q1

REPORT INFORMATION
  Report Type: 
  Country: None (occurrence: None)
  Receive Date: 20070328
  Receipt Date: 20070313
  Transmission Date: 20070707
  Serious: Yes (Hospitalization)
  Sender: FDA-Public Use
  Company Number: JP-SHR-JP-2006-024365

PATIENT
  Age: 31 Year
  Sex: Female
  Weight: 60 kg

DRUGS (7)
  1. BETASERON [Suspect]
     Indication: MULTIPLE SCLEROSIS
     Dosage: 9.6 MIU, EVERY 2D
     Route: 058
     Dates: start: 20021209, end: 20030427
  2. BETASERON [Suspect]
     Dosage: 2.4 MIU, EVERY 2D
     Route: 058
     Dates: start: 20040527, end: 20040916
  3. BETASERON [Suspect]
     Dosage: 9.6 MIU, EVERY 2D
     Route: 058
     Dates: start: 20040917, end: 20060803
  4. LIORESAL [Concomitant]
     Dosage: 5 MG, 3X/DAY
     Route: 048
     Dates: start: 20060518
  5. RIVOTRIL [Concomitant]
     Dosage: .25 MG, 1X/DAY
     Route: 048
     Dates: start: 20060725
  6. CYANOCOBALAMIN [Concomitant]
     Dosage: 500 A?G, 3X/DAY
     Route: 048
     Dates: start: 20060725
  7. JUVELA NICOTINATE [Concomitant]
     Dosage: 100 MG, 3X/DAY
     Route: 048
     Dates: start: 20060725

REACTIONS (5)
  - GOITRE [None]
  - HEPATIC FUNCTION ABNORMAL [None]
  - INTERSTITIAL LUNG DISEASE [None]
  - MULTIPLE SCLEROSIS RELAPSE [None]
  - THYROID FUNCTION TEST ABNORMAL [None]
